FAERS Safety Report 11452841 (Version 2)
Quarter: 2016Q1

REPORT INFORMATION
  Report Type: Spontaneous
  Country: US (occurrence: US)
  Receive Date: 20150903
  Receipt Date: 20160127
  Transmission Date: 20160525
  Serious: Yes (Hospitalization)
  Sender: FDA-Public Use
  Company Number: US-ASTRAZENECA-2015SE82600

PATIENT
  Sex: Female

DRUGS (1)
  1. BRILINTA [Suspect]
     Active Substance: TICAGRELOR
     Indication: ACUTE CORONARY SYNDROME
     Route: 048

REACTIONS (8)
  - Fall [Unknown]
  - Haemorrhage [Unknown]
  - Skin disorder [Unknown]
  - Laceration [Unknown]
  - Malnutrition [Unknown]
  - Dyspnoea [Unknown]
  - Nausea [Unknown]
  - Weight decreased [Unknown]
